FAERS Safety Report 23952795 (Version 5)
Quarter: 2024Q4

REPORT INFORMATION
  Report Type: Report from Study
  Country: US (occurrence: US)
  Receive Date: 20240607
  Receipt Date: 20241016
  Transmission Date: 20250114
  Serious: Yes (Hospitalization, Other)
  Sender: TAKEDA
  Company Number: US-TAKEDA-2024TUS046331

PATIENT
  Age: 65 Year
  Sex: Male

DRUGS (4)
  1. FRUQUINTINIB [Suspect]
     Active Substance: FRUQUINTINIB
     Indication: Rectal cancer
     Dosage: 5 MILLIGRAM
     Route: 048
     Dates: start: 20240227
  2. FRUQUINTINIB [Suspect]
     Active Substance: FRUQUINTINIB
     Dosage: 4 MILLIGRAM
     Route: 048
  3. FRUQUINTINIB [Suspect]
     Active Substance: FRUQUINTINIB
     Dosage: 3 MILLIGRAM
     Route: 048
  4. FRUQUINTINIB [Suspect]
     Active Substance: FRUQUINTINIB
     Dosage: 3 MILLIGRAM
     Route: 048

REACTIONS (9)
  - Sepsis [Unknown]
  - Complication associated with device [Unknown]
  - Blood urine present [Unknown]
  - Haematological infection [Unknown]
  - Urinary tract infection [Unknown]
  - General physical health deterioration [Unknown]
  - Hypophagia [Unknown]
  - Decreased activity [Unknown]
  - Nausea [Unknown]

NARRATIVE: CASE EVENT DATE: 20240801
